FAERS Safety Report 16905784 (Version 5)
Quarter: 2020Q1

REPORT INFORMATION
  Report Type: Report from Study
  Country: US (occurrence: US)
  Receive Date: 20191010
  Receipt Date: 20200312
  Transmission Date: 20200409
  Serious: Yes (Hospitalization, Other)
  Sender: FDA-Public Use
  Company Number: US-ACTELION-A-NJ2019-196630

PATIENT
  Age: 57 Year
  Sex: Female

DRUGS (22)
  1. TORSEMIDE. [Concomitant]
     Active Substance: TORSEMIDE
  2. CELLCEPT [Concomitant]
     Active Substance: MYCOPHENOLATE MOFETIL\MYCOPHENOLATE MOFETIL HYDROCHLORIDE
  3. PROTONIX [Concomitant]
     Active Substance: PANTOPRAZOLE SODIUM
  4. BENADRYL [Concomitant]
     Active Substance: DIPHENHYDRAMINE HYDROCHLORIDE
  5. OPSUMIT [Suspect]
     Active Substance: MACITENTAN
     Indication: PULMONARY HYPERTENSION
     Dosage: 10 MG, QD
     Route: 048
     Dates: start: 20180728
  6. SILDENAFIL. [Concomitant]
     Active Substance: SILDENAFIL
     Dosage: 20 MG, TID
     Dates: start: 201807
  7. K-TAB [Concomitant]
     Active Substance: POTASSIUM CHLORIDE
  8. PREDNISONE. [Concomitant]
     Active Substance: PREDNISONE
  9. CLEARLAX [Concomitant]
     Active Substance: POLYETHYLENE GLYCOL 3350
  10. PROBIATA [Concomitant]
  11. LIPITOR [Concomitant]
     Active Substance: ATORVASTATIN CALCIUM
  12. DIGOXIN. [Concomitant]
     Active Substance: DIGOXIN
     Dosage: 125 MCG, QD
     Dates: start: 201807
  13. FAMOTIDINE. [Concomitant]
     Active Substance: FAMOTIDINE
  14. ATORVASTATIN [Concomitant]
     Active Substance: ATORVASTATIN
     Dosage: 80 MG, QPM
     Dates: start: 201807
  15. PENTOXIFYLLINE. [Concomitant]
     Active Substance: PENTOXIFYLLINE
  16. PERCOCET [Concomitant]
     Active Substance: ACETAMINOPHEN\OXYCODONE HYDROCHLORIDE
  17. ZOFRAN [Concomitant]
     Active Substance: ONDANSETRON HYDROCHLORIDE
  18. VITRON C [Concomitant]
     Active Substance: ASCORBIC ACID\IRON
  19. NIFEDIPINE. [Concomitant]
     Active Substance: NIFEDIPINE
     Dosage: 30 MG, QD
     Dates: start: 201807
  20. ASPIRIN. [Concomitant]
     Active Substance: ASPIRIN
  21. FLONASE [Concomitant]
     Active Substance: FLUTICASONE PROPIONATE
  22. COLLAGENASE SANTYL [Concomitant]
     Active Substance: COLLAGENASE CLOSTRIDIUM HISTOLYTICUM
     Route: 061

REACTIONS (12)
  - Gangrene [Unknown]
  - Angiogram [Unknown]
  - Skin ulcer [Unknown]
  - Ischaemia [Unknown]
  - Toe amputation [Unknown]
  - Hypoaesthesia [Unknown]
  - Dyspnoea [Recovering/Resolving]
  - Peripheral vascular disorder [Recovered/Resolved]
  - Ischaemic skin ulcer [Unknown]
  - Angioplasty [Unknown]
  - Cellulitis [Unknown]
  - Leg amputation [Recovered/Resolved]

NARRATIVE: CASE EVENT DATE: 20190922
